FAERS Safety Report 25071806 (Version 2)
Quarter: 2025Q2

REPORT INFORMATION
  Report Type: Report from Study
  Country: US (occurrence: US)
  Receive Date: 20250313
  Receipt Date: 20250514
  Transmission Date: 20250717
  Serious: No
  Sender: BIOVITRUM
  Company Number: US-BIOVITRUM-2025-US-003208

PATIENT
  Age: 62 Year
  Sex: Female

DRUGS (2)
  1. KINERET [Suspect]
     Active Substance: ANAKINRA
     Indication: Product used for unknown indication
     Route: 058
  2. PREDNISONE [Concomitant]
     Active Substance: PREDNISONE
     Indication: Product used for unknown indication

REACTIONS (11)
  - Anxiety [Unknown]
  - Hyperhidrosis [Unknown]
  - Intentional dose omission [Unknown]
  - Dysgeusia [Unknown]
  - Fluid retention [Unknown]
  - Swelling face [Unknown]
  - Periorbital swelling [Unknown]
  - Palpitations [Unknown]
  - Wrong technique in product usage process [Unknown]
  - Laboratory test abnormal [Recovering/Resolving]
  - Product dose omission issue [Unknown]
